FAERS Safety Report 12436810 (Version 1)
Quarter: 2016Q2

REPORT INFORMATION
  Report Type: Spontaneous
  Country: US (occurrence: None)
  Receive Date: 20160603
  Receipt Date: 20160603
  Transmission Date: 20160815
  Serious: Yes (Life-Threatening)
  Sender: FDA-Public Use
  Company Number: None

PATIENT
  Age: 52 Year
  Sex: Female
  Weight: 88.45 kg

DRUGS (8)
  1. SULFAMETHOXAZOLE-TMP DS TAB VIS [Suspect]
     Active Substance: SULFAMETHOXAZOLE\TRIMETHOPRIM
     Indication: URINARY TRACT INFECTION
     Route: 048
     Dates: start: 20160524, end: 20160530
  2. SIMVASTATIN. [Concomitant]
     Active Substance: SIMVASTATIN
  3. PREDNISONE. [Concomitant]
     Active Substance: PREDNISONE
  4. VITAMIN D [Concomitant]
     Active Substance: CHOLECALCIFEROL
  5. PREVACID [Concomitant]
     Active Substance: LANSOPRAZOLE
  6. CITRACAL [Concomitant]
     Active Substance: CALCIUM CITRATE
  7. CALCIUM [Concomitant]
     Active Substance: CALCIUM
  8. EXCEDRIN [Concomitant]
     Active Substance: ACETAMINOPHEN\ASPIRIN\CAFFEINE

REACTIONS (9)
  - Neck pain [None]
  - Hypersensitivity [None]
  - Rash [None]
  - Malaise [None]
  - Musculoskeletal pain [None]
  - Headache [None]
  - Eye disorder [None]
  - Myalgia [None]
  - Fatigue [None]

NARRATIVE: CASE EVENT DATE: 20160529
